FAERS Safety Report 6860890-X (Version None)
Quarter: 2010Q3

REPORT INFORMATION
  Report Type: 
  Country: None (occurrence: None)
  Receive Date: 20100720
  Receipt Date: 20100706
  Transmission Date: 20110219
  Serious: Yes (Other)
  Sender: FDA-Public Use
  Company Number: US-ELI_LILLY_AND_COMPANY-US201007001969

PATIENT
  Sex: Female

DRUGS (5)
  1. FORTEO [Suspect]
     Indication: OSTEOPOROSIS
     Dosage: 20 UG, DAILY (1/D)
     Dates: start: 20100410
  2. CALCIUM [Concomitant]
  3. VITAMIN D [Concomitant]
  4. PRAVASTATIN [Concomitant]
  5. MULTI-VITAMIN [Concomitant]

REACTIONS (5)
  - HYPOTHYROIDISM [None]
  - INSOMNIA [None]
  - IRRITABILITY [None]
  - THYROID CANCER [None]
  - WEIGHT FLUCTUATION [None]
